FAERS Safety Report 5225678-4 (Version None)
Quarter: 2007Q1

REPORT INFORMATION
  Report Type: 
  Country: None (occurrence: None)
  Receive Date: 20061201
  Receipt Date: 20061106
  Transmission Date: 20070707
  Serious: No
  Sender: FDA-Public Use
  Company Number: US200610004718

PATIENT
  Age: 44 Year
  Sex: Female
  Weight: 66.7 kg

DRUGS (3)
  1. CYMBALTA [Suspect]
     Indication: PAIN
     Dosage: SEE IMAGE
     Dates: start: 20060101
  2. CYMBALTA [Suspect]
     Indication: PAIN
     Dosage: SEE IMAGE
     Dates: start: 20060915
  3. NECON (ETHINYLESTRADIOL, NORETHISTERONE) [Concomitant]

REACTIONS (2)
  - ARTHROSCOPY [None]
  - HYPERTENSION [None]
